FAERS Safety Report 4546383-3 (Version None)
Quarter: 2005Q1

REPORT INFORMATION
  Report Type: 
  Country: None (occurrence: None)
  Receive Date: 20050103
  Receipt Date: 20041209
  Transmission Date: 20050727
  Serious: Yes (Death)
  Sender: FDA-Public Use
  Company Number: GBS041015738

PATIENT
  Age: 49 Year
  Sex: Male
  Weight: 95 kg

DRUGS (5)
  1. XIGRIS [Suspect]
     Indication: SEPTIC SHOCK
     Dosage: 24 MG/KG/HR
     Dates: start: 20040921, end: 20040924
  2. HYDROCORTISONE [Concomitant]
  3. TAZOCIN [Concomitant]
  4. NORADRENALINE [Concomitant]
  5. DOPEXAMINE [Concomitant]

REACTIONS (1)
  - CEREBRAL HAEMORRHAGE [None]
